FAERS Safety Report 5324497-8 (Version None)
Quarter: 2007Q2

REPORT INFORMATION
  Report Type: 
  Country: None (occurrence: None)
  Receive Date: 20070514
  Receipt Date: 20070502
  Transmission Date: 20071010
  Serious: Yes (Other)
  Sender: FDA-Public Use
  Company Number: US-PFIZER INC-2007019729

PATIENT
  Sex: Female
  Weight: 72.6 kg

DRUGS (1)
  1. CHANTIX [Suspect]
     Indication: EX-SMOKER
     Dates: start: 20070213, end: 20070310

REACTIONS (4)
  - FLATULENCE [None]
  - HOT FLUSH [None]
  - INSOMNIA [None]
  - WEIGHT INCREASED [None]
